FAERS Safety Report 8473686-2 (Version None)
Quarter: 2012Q2

REPORT INFORMATION
  Report Type: 
  Country: None (occurrence: None)
  Receive Date: 20120628
  Receipt Date: 20111005
  Transmission Date: 20120825
  Serious: Yes (Other)
  Sender: FDA-Public Use
  Company Number: US-MYLANLABS-2011S1018242

PATIENT
  Age: 69 Year
  Sex: Female

DRUGS (8)
  1. COGENTIN [Concomitant]
  2. ALPRAZOLAM [Concomitant]
  3. BENADRYL [Concomitant]
  4. ASPIRIN [Concomitant]
  5. ALLEGRA [Concomitant]
  6. CLOZAPINE [Suspect]
     Dates: start: 20110906, end: 20110901
  7. CITALOPRAM HYDROBROMIDE [Concomitant]
  8. CLOZAPINE [Suspect]
     Indication: SCHIZOPHRENIA
     Dates: end: 20110831

REACTIONS (2)
  - GRANULOCYTOPENIA [None]
  - LEUKOPENIA [None]
